FAERS Safety Report 9781412 (Version 2)
Quarter: 2014Q1

REPORT INFORMATION
  Report Type: Spontaneous
  Country: US (occurrence: US)
  Receive Date: 20131224
  Receipt Date: 20140313
  Transmission Date: 20141002
  Serious: No
  Sender: FDA-Public Use
  Company Number: US-GILEAD-2013-0090533

PATIENT
  Sex: Male

DRUGS (5)
  1. LETAIRIS [Suspect]
     Indication: PULMONARY HYPERTENSION
     Dosage: 10 MG, QD
     Route: 048
     Dates: start: 20130212
  2. LETAIRIS [Suspect]
     Indication: HIV INFECTION
  3. COUMADIN                           /00014802/ [Concomitant]
  4. REMODULIN [Concomitant]
  5. REVATIO [Concomitant]

REACTIONS (1)
  - Catheter site inflammation [Unknown]
